FAERS Safety Report 4719013-5 (Version None)
Quarter: 2005Q3

REPORT INFORMATION
  Report Type: 
  Country: None (occurrence: None)
  Receive Date: 20050719
  Receipt Date: 20050701
  Transmission Date: 20060218
  Serious: Yes (Other)
  Sender: FDA-Public Use
  Company Number: DE_050716344

PATIENT
  Age: 43 Year
  Sex: Female
  Weight: 59 kg

DRUGS (2)
  1. CYMBALTA [Suspect]
     Indication: MAJOR DEPRESSION
     Dosage: 60 MG
     Dates: start: 20050326, end: 20050326
  2. OXYCODONE HCL [Concomitant]

REACTIONS (4)
  - ANXIETY [None]
  - FEELING ABNORMAL [None]
  - NIGHTMARE [None]
  - PSYCHOTIC DISORDER [None]
